FAERS Safety Report 5564121-2 (Version None)
Quarter: 2007Q4

REPORT INFORMATION
  Report Type: 
  Country: None (occurrence: None)
  Receive Date: 20071217
  Receipt Date: 20071205
  Transmission Date: 20080405
  Serious: Yes (Hospitalization)
  Sender: FDA-Public Use
  Company Number: DE-PFIZER INC-2007099404

PATIENT
  Sex: Male
  Weight: 75 kg

DRUGS (2)
  1. SU-011,248 [Suspect]
     Indication: METASTATIC RENAL CELL CARCINOMA
     Route: 048
  2. IBANDRONATE SODIUM [Suspect]
     Route: 042
     Dates: start: 20050421, end: 20070905

REACTIONS (1)
  - OSTEONECROSIS [None]
